FAERS Safety Report 6200017-0 (Version None)
Quarter: 2009Q2

REPORT INFORMATION
  Report Type: 
  Country: None (occurrence: None)
  Receive Date: 20090522
  Receipt Date: 20090513
  Transmission Date: 20091009
  Serious: Yes (Disabling, Other)
  Sender: FDA-Public Use
  Company Number: US-MERCK-0810USA05278

PATIENT
  Age: 52 Year
  Sex: Female
  Weight: 86 kg

DRUGS (7)
  1. FOSAMAX [Suspect]
     Indication: OSTEOPOROSIS
     Route: 048
     Dates: start: 20030101, end: 20040311
  2. FOSAMAX [Suspect]
     Route: 048
     Dates: start: 20040311, end: 20050101
  3. FOSAMAX [Suspect]
     Route: 048
     Dates: start: 20060201, end: 20060101
  4. FOSAMAX [Suspect]
     Indication: OSTEOPENIA
     Route: 048
     Dates: start: 20030101, end: 20040311
  5. FOSAMAX [Suspect]
     Route: 048
     Dates: start: 20040311, end: 20050101
  6. FOSAMAX [Suspect]
     Route: 048
     Dates: start: 20060201, end: 20060101
  7. ZOCOR [Concomitant]
     Indication: HYPERLIPIDAEMIA
     Route: 048
     Dates: start: 20000101

REACTIONS (47)
  - ASTHMA [None]
  - BACK PAIN [None]
  - BONE DISORDER [None]
  - BORDERLINE GLAUCOMA [None]
  - BRONCHITIS [None]
  - CARDIOVASCULAR DISORDER [None]
  - CARPAL TUNNEL SYNDROME [None]
  - CERVICAL DYSPLASIA [None]
  - CHOLELITHIASIS [None]
  - COSTOCHONDRITIS [None]
  - DEAFNESS [None]
  - DENTAL FISTULA [None]
  - DEPRESSION [None]
  - DIABETIC NEUROPATHY [None]
  - DIABETIC RETINOPATHY [None]
  - DIZZINESS [None]
  - DRY MOUTH [None]
  - FATIGUE [None]
  - HEADACHE [None]
  - HIATUS HERNIA [None]
  - HYPERHIDROSIS [None]
  - HYPOTENSION [None]
  - IMPAIRED HEALING [None]
  - JAW DISORDER [None]
  - LABILE HYPERTENSION [None]
  - LARYNGITIS [None]
  - MENOPAUSAL SYMPTOMS [None]
  - MICROALBUMINURIA [None]
  - NEPHROLITHIASIS [None]
  - NIGHT SWEATS [None]
  - ORAL INFECTION [None]
  - OROANTRAL FISTULA [None]
  - OSTEONECROSIS [None]
  - OTITIS EXTERNA [None]
  - PALPITATIONS [None]
  - PERIODONTAL DISEASE [None]
  - RHINITIS SEASONAL [None]
  - SEASONAL ALLERGY [None]
  - SKIN LACERATION [None]
  - SLEEP DISORDER [None]
  - SUPRAVENTRICULAR EXTRASYSTOLES [None]
  - TOOTH ABSCESS [None]
  - TYPE 2 DIABETES MELLITUS [None]
  - UPPER RESPIRATORY TRACT INFECTION [None]
  - URGE INCONTINENCE [None]
  - VENTRICULAR EXTRASYSTOLES [None]
  - WEIGHT INCREASED [None]
